FAERS Safety Report 5116786-7 (Version None)
Quarter: 2006Q3

REPORT INFORMATION
  Report Type: 
  Country: None (occurrence: None)
  Receive Date: 20060928
  Receipt Date: 20060512
  Transmission Date: 20061208
  Serious: Yes (Other)
  Sender: FDA-Public Use
  Company Number: DE-SANOFI-SYNTHELABO-A04200600523

PATIENT
  Sex: Female

DRUGS (3)
  1. ELOXATIN [Suspect]
     Indication: METASTATIC GASTRIC CANCER
     Route: 041
  2. CALCIUM FOLINATE [Concomitant]
     Indication: METASTATIC GASTRIC CANCER
     Route: 041
  3. FLUOROURACIL [Concomitant]
     Indication: METASTATIC GASTRIC CANCER
     Route: 041

REACTIONS (3)
  - MALIGNANT NEOPLASM PROGRESSION [None]
  - POLYNEUROPATHY IN MALIGNANT DISEASE [None]
  - VITH NERVE PARALYSIS [None]
